FAERS Safety Report 6755719-4 (Version None)
Quarter: 2010Q2

REPORT INFORMATION
  Report Type: 
  Country: None (occurrence: None)
  Receive Date: 20100604
  Receipt Date: 20100524
  Transmission Date: 20101027
  Serious: Yes (Hospitalization)
  Sender: FDA-Public Use
  Company Number: US-ELI_LILLY_AND_COMPANY-US201003000654

PATIENT
  Age: 70 Year
  Sex: Female

DRUGS (5)
  1. ALIMTA [Suspect]
     Indication: NON-SMALL CELL LUNG CANCER
     Dosage: UNK, UNKNOWN
     Route: 065
     Dates: end: 20091201
  2. AVASTIN [Concomitant]
     Dosage: UNK, UNKNOWN
     Route: 065
     Dates: end: 20091201
  3. VITAMIN B-12 [Concomitant]
  4. FOLIC ACID [Concomitant]
  5. DEXAMETHASONE [Concomitant]

REACTIONS (2)
  - ASTHENIA [None]
  - MALIGNANT NEOPLASM PROGRESSION [None]
